FAERS Safety Report 23444578 (Version 4)
Quarter: 2024Q3

REPORT INFORMATION
  Report Type: Spontaneous
  Country: US (occurrence: US)
  Receive Date: 20240125
  Receipt Date: 20240919
  Transmission Date: 20241016
  Serious: No
  Sender: BRISTOL MYERS SQUIBB
  Company Number: US-BRISTOL-MYERS SQUIBB COMPANY-2024-012770

PATIENT
  Age: 76 Year
  Sex: Female
  Weight: 78.47 kg

DRUGS (2)
  1. POMALYST [Suspect]
     Active Substance: POMALIDOMIDE
     Indication: Plasma cell myeloma
     Route: 048
  2. POMALYST [Suspect]
     Active Substance: POMALIDOMIDE
     Dosage: 3WKSON/1WKOFF
     Route: 048
     Dates: start: 20230701

REACTIONS (6)
  - Dyspnoea [Unknown]
  - Dry eye [Unknown]
  - Urinary tract infection [Unknown]
  - Hyperkeratosis [Unknown]
  - Pain [Not Recovered/Not Resolved]
  - Infection [Recovered/Resolved]

NARRATIVE: CASE EVENT DATE: 20240515
